FAERS Safety Report 10247191 (Version 3)
Quarter: 2016Q1

REPORT INFORMATION
  Report Type: Report from Study
  Country: US (occurrence: US)
  Receive Date: 20140619
  Receipt Date: 20160325
  Transmission Date: 20160525
  Serious: Yes (Hospitalization, Other)
  Sender: FDA-Public Use
  Company Number: PHEH2014US011878

PATIENT
  Age: 41 Year
  Sex: Female
  Weight: 77.98 kg

DRUGS (19)
  1. MULTIVIT?MIN [Concomitant]
     Indication: PRODUCT USED FOR UNKNOWN INDICATION
     Dosage: 1 DF, QD
     Route: 065
  2. PERIACTIN [Concomitant]
     Active Substance: CYPROHEPTADINE HYDROCHLORIDE
     Indication: PRODUCT USED FOR UNKNOWN INDICATION
     Route: 065
  3. VALIUM [Concomitant]
     Active Substance: DIAZEPAM
     Indication: PRODUCT USED FOR UNKNOWN INDICATION
     Route: 065
  4. PERCOCET [Concomitant]
     Active Substance: ACETAMINOPHEN\OXYCODONE HYDROCHLORIDE
     Indication: PRODUCT USED FOR UNKNOWN INDICATION
     Route: 065
  5. AMLODIPINE [Concomitant]
     Active Substance: AMLODIPINE BESYLATE
     Indication: PRODUCT USED FOR UNKNOWN INDICATION
     Dosage: 5 MG, DAILY
     Route: 065
  6. TACROLIMUS. [Suspect]
     Active Substance: TACROLIMUS
     Indication: IMMUNOSUPPRESSION
     Dosage: 2 MG, BID
     Route: 048
     Dates: start: 2008
  7. LEVOTHYROXIN [Concomitant]
     Active Substance: LEVOTHYROXINE
     Indication: PRODUCT USED FOR UNKNOWN INDICATION
     Dosage: 100 UG, DAILY
     Route: 048
  8. ATIVAN [Concomitant]
     Active Substance: LORAZEPAM
     Indication: PRODUCT USED FOR UNKNOWN INDICATION
     Dosage: 1 MG, TID
     Route: 048
  9. PROMETHAZINE [Concomitant]
     Active Substance: PROMETHAZINE\PROMETHAZINE HYDROCHLORIDE
     Indication: PRODUCT USED FOR UNKNOWN INDICATION
     Dosage: 25 MG, BID
     Route: 048
  10. CYTOMEL [Concomitant]
     Active Substance: LIOTHYRONINE SODIUM
     Indication: PRODUCT USED FOR UNKNOWN INDICATION
     Dosage: 5 UG, DAILY
     Route: 048
  11. TYLENOL [Concomitant]
     Active Substance: ACETAMINOPHEN
     Indication: PRODUCT USED FOR UNKNOWN INDICATION
     Dosage: UNK UKN, UNK
     Route: 065
  12. FLEXERIL [Concomitant]
     Active Substance: CYCLOBENZAPRINE HYDROCHLORIDE
     Indication: PRODUCT USED FOR UNKNOWN INDICATION
     Route: 065
  13. PREDNISONE. [Concomitant]
     Active Substance: PREDNISONE
     Indication: PRODUCT USED FOR UNKNOWN INDICATION
     Dosage: 5 MG, DAILY
     Route: 065
  14. ACETAMINOPHEN. [Concomitant]
     Active Substance: ACETAMINOPHEN
     Dosage: 1000 MG, BID
     Route: 048
  15. CYCLOBENZAPRINE [Concomitant]
     Active Substance: CYCLOBENZAPRINE
     Indication: PRODUCT USED FOR UNKNOWN INDICATION
     Dosage: 10 MG, BID
     Route: 048
  16. LABETALOL [Concomitant]
     Active Substance: LABETALOL\LABETALOL HYDROCHLORIDE
     Indication: PRODUCT USED FOR UNKNOWN INDICATION
     Dosage: 200 MG, BID
     Route: 065
  17. MYFORTIC [Suspect]
     Active Substance: MYCOPHENOLATE SODIUM
     Indication: COMPLICATIONS OF TRANSPLANTED KIDNEY
     Dosage: 360 MG, BID
     Route: 048
  18. ACETAMINOPHEN. [Concomitant]
     Active Substance: ACETAMINOPHEN
     Indication: PRODUCT USED FOR UNKNOWN INDICATION
     Dosage: 650 MG, Q4H
     Route: 065
  19. HYDROMORPHON [Concomitant]
     Active Substance: HYDROMORPHONE
     Indication: PRODUCT USED FOR UNKNOWN INDICATION
     Dosage: 0.4 MG, Q4H
     Route: 042

REACTIONS (32)
  - Mucous stools [Unknown]
  - Palpitations [Unknown]
  - Back disorder [Unknown]
  - Haematochezia [Unknown]
  - Dizziness postural [Recovered/Resolved]
  - Vomiting [Unknown]
  - Hypovolaemia [Unknown]
  - Bundle branch block left [Unknown]
  - Heart rate increased [Unknown]
  - Anal incontinence [Unknown]
  - Diarrhoea [Recovered/Resolved]
  - Hypersthenuria [Unknown]
  - Presyncope [Recovering/Resolving]
  - Sinus tachycardia [Unknown]
  - Gastroenteritis viral [Unknown]
  - Nausea [Recovered/Resolved]
  - Metabolic acidosis [Unknown]
  - Influenza [Recovered/Resolved]
  - Blood pressure systolic increased [Recovering/Resolving]
  - Hypophagia [Unknown]
  - Decreased appetite [Unknown]
  - Retching [Unknown]
  - Fall [Unknown]
  - Abdominal pain lower [Recovering/Resolving]
  - Dehydration [Unknown]
  - Adrenal insufficiency [Unknown]
  - Acute kidney injury [Recovering/Resolving]
  - Pyrexia [Recovered/Resolved]
  - Dizziness [Recovered/Resolved]
  - Micturition frequency decreased [Unknown]
  - Kidney transplant rejection [Not Recovered/Not Resolved]
  - Back pain [Recovering/Resolving]

NARRATIVE: CASE EVENT DATE: 20130917
